FAERS Safety Report 24213085 (Version 1)
Quarter: 2024Q3

REPORT INFORMATION
  Report Type: Spontaneous
  Country: US (occurrence: US)
  Receive Date: 20240815
  Receipt Date: 20240815
  Transmission Date: 20241017
  Serious: Yes (Other)
  Sender: ABBVIE
  Company Number: US-ABBVIE-5875849

PATIENT
  Sex: Male

DRUGS (9)
  1. VENCLEXTA [Suspect]
     Active Substance: VENETOCLAX
     Indication: Diffuse large B-cell lymphoma
     Route: 048
     Dates: start: 20240724
  2. VENCLEXTA [Suspect]
     Active Substance: VENETOCLAX
     Indication: Diffuse large B-cell lymphoma
     Dosage: STRENGTH:50 MG?DAY 2?FOR 4 DAYS
     Route: 048
     Dates: start: 20240725
  3. VENCLEXTA [Suspect]
     Active Substance: VENETOCLAX
     Indication: Diffuse large B-cell lymphoma
     Dosage: FOR 3 DAYS?STRENGTH: 50 MG
     Route: 048
     Dates: start: 20240729
  4. VENCLEXTA [Suspect]
     Active Substance: VENETOCLAX
     Indication: Diffuse large B-cell lymphoma
     Dosage: STRENGTH:50 MG?FOR 3 DAYS
     Route: 048
     Dates: start: 20240801
  5. VENCLEXTA [Suspect]
     Active Substance: VENETOCLAX
     Indication: Diffuse large B-cell lymphoma
     Dosage: STRENGTH: 50 MG?FOR 3 DAYS?THEN TAKE 7 DAYS OFF
     Route: 048
     Dates: start: 20240804
  6. PANTOPRAZOLE SODIUM [Concomitant]
     Active Substance: PANTOPRAZOLE SODIUM
     Indication: Product used for unknown indication
     Route: 048
  7. BACTRIM [Concomitant]
     Active Substance: SULFAMETHOXAZOLE\TRIMETHOPRIM
     Indication: Product used for unknown indication
     Dosage: 800-160MG PER TABLET?FOR 180 DAYS
     Route: 048
     Dates: start: 20240425
  8. ZOVIRAX [Concomitant]
     Active Substance: ACYCLOVIR
     Indication: Product used for unknown indication
     Route: 048
     Dates: start: 20240424
  9. DECADRON [Concomitant]
     Active Substance: DEXAMETHASONE
     Indication: Product used for unknown indication
     Dosage: FOR 3 DAYS
     Route: 048
     Dates: start: 20240430

REACTIONS (10)
  - Acute kidney injury [Unknown]
  - Sepsis [Unknown]
  - Laboratory test abnormal [Unknown]
  - Cytokine release syndrome [Unknown]
  - Febrile neutropenia [Unknown]
  - Encephalopathy [Unknown]
  - Pancytopenia [Unknown]
  - Off label use [Unknown]
  - Seizure [Not Recovered/Not Resolved]
  - Rash maculo-papular [Unknown]

NARRATIVE: CASE EVENT DATE: 20240101
